FAERS Safety Report 25482484 (Version 1)
Quarter: 2025Q2

REPORT INFORMATION
  Report Type: Spontaneous
  Country: JP (occurrence: JP)
  Receive Date: 20250626
  Receipt Date: 20250626
  Transmission Date: 20250717
  Serious: Yes (Hospitalization, Other)
  Sender: UCB
  Company Number: JP-UCBJ-CD202506881UCBPHAPROD

PATIENT
  Age: 71 Year
  Sex: Female

DRUGS (13)
  1. LEVETIRACETAM [Suspect]
     Active Substance: LEVETIRACETAM
     Indication: Epilepsy
     Route: 048
  2. LEVETIRACETAM [Suspect]
     Active Substance: LEVETIRACETAM
     Route: 048
  3. VALPROATE SODIUM [Suspect]
     Active Substance: VALPROATE SODIUM
     Indication: Logorrhoea
  4. VALPROATE SODIUM [Suspect]
     Active Substance: VALPROATE SODIUM
     Indication: Delusion
  5. LITHIUM CARBONATE [Concomitant]
     Active Substance: LITHIUM CARBONATE
     Indication: Product used for unknown indication
  6. HERBALS [Concomitant]
     Active Substance: HERBALS
     Indication: Product used for unknown indication
  7. DONEPEZIL HYDROCHLORIDE [Concomitant]
     Active Substance: DONEPEZIL HYDROCHLORIDE
     Indication: Product used for unknown indication
  8. QUETIAPINE [Concomitant]
     Active Substance: QUETIAPINE
     Indication: Logorrhoea
  9. QUETIAPINE [Concomitant]
     Active Substance: QUETIAPINE
     Indication: Delusion
  10. SUVOREXANT [Concomitant]
     Active Substance: SUVOREXANT
     Indication: Product used for unknown indication
  11. ROZEREM [Concomitant]
     Active Substance: RAMELTEON
     Indication: Insomnia
     Dosage: 8 MILLIGRAM, ONCE DAILY (QD)
     Route: 048
  12. KAYEXALATE [Concomitant]
     Active Substance: SODIUM POLYSTYRENE SULFONATE
     Indication: Hyperkalaemia
     Route: 065
  13. MAGNESIUM OXIDE [Concomitant]
     Active Substance: MAGNESIUM OXIDE
     Indication: Constipation
     Route: 065

REACTIONS (5)
  - Hallucination, visual [Recovered/Resolved]
  - Agitation [Unknown]
  - Irritability [Unknown]
  - Decreased appetite [Unknown]
  - Treatment noncompliance [Unknown]
